FAERS Safety Report 4683538-1 (Version None)
Quarter: 2005Q2

REPORT INFORMATION
  Report Type: 
  Country: None (occurrence: None)
  Receive Date: 20050606
  Receipt Date: 20050606
  Transmission Date: 20051028
  Serious: Yes (Other)
  Sender: FDA-Public Use
  Company Number: None

PATIENT
  Age: 64 Year
  Sex: Female
  Weight: 66.2252 kg

DRUGS (1)
  1. ZETIA [Suspect]
     Indication: LIPIDS INCREASED
     Dosage: 1 TAB   DAY   ORAL
     Route: 048
     Dates: start: 20041220, end: 20050605

REACTIONS (1)
  - THERAPEUTIC RESPONSE UNEXPECTED [None]
